FAERS Safety Report 21290008 (Version 1)
Quarter: 2022Q3

REPORT INFORMATION
  Report Type: Spontaneous
  Country: CN (occurrence: CN)
  Receive Date: 20220902
  Receipt Date: 20220902
  Transmission Date: 20221026
  Serious: Yes (Other)
  Sender: FDA-Public Use
  Company Number: None

PATIENT
  Age: 55 Year
  Sex: Female
  Weight: 64.3 kg

DRUGS (4)
  1. CYCLOPHOSPHAMIDE [Suspect]
     Active Substance: CYCLOPHOSPHAMIDE
     Indication: Invasive breast carcinoma
     Dosage: 1.G, QD, DILUTED WITH DILUENT  0.9% SODIUM CHLORIDE INJECTION (100 ML), Q2W REGIMEN CHEMOTHERAPY
     Route: 041
     Dates: start: 20220815, end: 20220815
  2. SODIUM CHLORIDE [Suspect]
     Active Substance: SODIUM CHLORIDE
     Indication: Vehicle solution use
     Dosage: 100 ML, ONCE DAILY, DILUTED WITH CYCLOPHOSPHAMIDE (1000 MG), Q2W REGIMEN CHEMOTHERAPY
     Route: 041
     Dates: start: 20220815, end: 20220815
  3. DOXORUBICIN HYDROCHLORIDE [Suspect]
     Active Substance: DOXORUBICIN HYDROCHLORIDE
     Indication: Invasive breast carcinoma
     Dosage: 100 MG, ONCE DAILY, DILUTED WITH STERILE WATER FOR INJECTION (50 ML), Q2W REGIMEN CHEMOTHERAPY
     Route: 041
     Dates: start: 20220815, end: 20220815
  4. STERILE WATER [Suspect]
     Active Substance: WATER
     Indication: Vehicle solution use
     Dosage: 50 ML, ONCE DAILY, DILUTED WITH DOXORUBICIN HYDROCHLORIDE (100 MG)
     Route: 041
     Dates: start: 20220815, end: 20220815

REACTIONS (5)
  - Cystitis haemorrhagic [Unknown]
  - Pollakiuria [Recovered/Resolved]
  - Urinary incontinence [Recovered/Resolved]
  - Haematuria [Recovered/Resolved]
  - Haemoglobin decreased [Recovering/Resolving]

NARRATIVE: CASE EVENT DATE: 20220816
